FAERS Safety Report 5515122-1 (Version None)
Quarter: 2007Q4

REPORT INFORMATION
  Report Type: 
  Country: None (occurrence: None)
  Receive Date: 20071113
  Receipt Date: 20070110
  Transmission Date: 20080405
  Serious: No
  Sender: FDA-Public Use
  Company Number: A0635196A

PATIENT
  Age: 72 Year
  Sex: Female

DRUGS (3)
  1. COREG [Suspect]
     Indication: LEFT VENTRICULAR DYSFUNCTION
     Dosage: 6.25MG TWICE PER DAY
     Route: 048
     Dates: start: 20010101
  2. ALTACE [Concomitant]
  3. LIPITOR [Concomitant]

REACTIONS (2)
  - BLOOD PRESSURE INCREASED [None]
  - TINNITUS [None]
